FAERS Safety Report 10529104 (Version 2)
Quarter: 2014Q4

REPORT INFORMATION
  Report Type: Spontaneous
  Country: US (occurrence: US)
  Receive Date: 20141020
  Receipt Date: 20141112
  Transmission Date: 20150528
  Serious: No
  Sender: FDA-Public Use
  Company Number: US-PFIZER INC-2014283570

PATIENT
  Age: 51 Year
  Sex: Male

DRUGS (1)
  1. BOSULIF [Suspect]
     Active Substance: BOSUTINIB MONOHYDRATE
     Indication: CHRONIC MYELOID LEUKAEMIA
     Dosage: 500 MG, UNK
     Dates: start: 20141001

REACTIONS (10)
  - Rash generalised [Unknown]
  - Oropharyngeal pain [Unknown]
  - Lip swelling [Unknown]
  - Muscle spasms [Unknown]
  - Myalgia [Unknown]
  - Pruritus [Unknown]
  - Gout [Unknown]
  - Vomiting [Unknown]
  - Nausea [Unknown]
  - Diarrhoea [Unknown]
